FAERS Safety Report 23154000 (Version 1)
Quarter: 2023Q4

REPORT INFORMATION
  Report Type: Spontaneous
  Country: CA (occurrence: CA)
  Receive Date: 20231107
  Receipt Date: 20231107
  Transmission Date: 20240110
  Serious: Yes (Other)
  Sender: FDA-Public Use
  Company Number: CA-FreseniusKabi-FK202317676

PATIENT
  Age: 80 Year
  Sex: Female

DRUGS (1)
  1. MIDAZOLAM HYDROCHLORIDE [Suspect]
     Active Substance: MIDAZOLAM HYDROCHLORIDE
     Indication: Sedative therapy
     Dosage: DOSAGE FORM: SOLUTION INTRAMUSCULAR
     Route: 040

REACTIONS (1)
  - Depressed level of consciousness [Unknown]
